APPROVED DRUG PRODUCT: PROBENECID
Active Ingredient: PROBENECID
Strength: 500MG
Dosage Form/Route: TABLET;ORAL
Application: A084442 | Product #004 | TE Code: AB
Applicant: WATSON LABORATORIES INC AN INDIRECT WHOLLY OWNED SUB OF TEVA PHARMACEUTICALS USA INC
Approved: Mar 29, 1983 | RLD: No | RS: Yes | Type: RX